FAERS Safety Report 6867431-1 (Version None)
Quarter: 2010Q3

REPORT INFORMATION
  Report Type: 
  Country: None (occurrence: None)
  Receive Date: 20100722
  Receipt Date: 20100712
  Transmission Date: 20110219
  Serious: Yes (Other)
  Sender: FDA-Public Use
  Company Number: US-PFIZER INC-2010087330

PATIENT
  Sex: Male
  Weight: 70 kg

DRUGS (5)
  1. XALATAN [Suspect]
     Indication: INTRAOCULAR PRESSURE INCREASED
     Dosage: 1 DROP, DAILY AT NIGHT IN RIGHT EYE
     Route: 047
     Dates: start: 20100612
  2. LISINOPRIL [Concomitant]
     Indication: HYPERTENSION
     Dosage: 20 MG, UNK
  3. PRAVACHOL [Concomitant]
     Indication: BLOOD CHOLESTEROL INCREASED
     Dosage: UNK
  4. TAMSULOSIN [Concomitant]
     Indication: PROSTATE CANCER
     Dosage: UNK
  5. TOPROL-XL [Concomitant]
     Indication: ARRHYTHMIA
     Dosage: UNK

REACTIONS (3)
  - ATRIAL FIBRILLATION [None]
  - BLOOD SODIUM DECREASED [None]
  - DIPLOPIA [None]
